FAERS Safety Report 16150310 (Version 2)
Quarter: 2019Q2

REPORT INFORMATION
  Report Type: Spontaneous
  Country: JP (occurrence: BR)
  Receive Date: 20190403
  Receipt Date: 20190501
  Transmission Date: 20190711
  Serious: Yes (Other)
  Sender: FDA-Public Use
  Company Number: JP-SUNOVION-2019SUN001129

PATIENT
  Sex: Female
  Weight: 56 kg

DRUGS (7)
  1. LATUDA [Suspect]
     Active Substance: LURASIDONE HYDROCHLORIDE
     Dosage: 40 MG, QD
     Route: 048
     Dates: start: 20190319, end: 20190322
  2. RIVOTRIL [Concomitant]
     Active Substance: CLONAZEPAM
     Dosage: UNK
  3. LATUDA [Suspect]
     Active Substance: LURASIDONE HYDROCHLORIDE
     Indication: PRODUCT USED FOR UNKNOWN INDICATION
     Dosage: 20 MG, QD (0.5 DF)
     Route: 048
     Dates: start: 20190312, end: 20190318
  4. PREGABALIN. [Concomitant]
     Active Substance: PREGABALIN
     Dosage: UNKNOWN
  5. VITAMIN D3 [Concomitant]
     Active Substance: CHOLECALCIFEROL
     Dosage: UNK
  6. LATUDA [Suspect]
     Active Substance: LURASIDONE HYDROCHLORIDE
     Dosage: 20 MG (0.5 DF), QD
     Route: 048
     Dates: start: 20190421
  7. HYDROCHLOROTHIAZIDE. [Concomitant]
     Active Substance: HYDROCHLOROTHIAZIDE
     Dosage: UNK

REACTIONS (24)
  - Oropharyngeal pain [Unknown]
  - Malaise [Recovered/Resolved]
  - Insomnia [Recovered/Resolved]
  - Alopecia [Recovering/Resolving]
  - Decreased appetite [Recovered/Resolved]
  - Wrong technique in product usage process [Recovered/Resolved]
  - Wrong technique in product usage process [Not Recovered/Not Resolved]
  - Heart rate increased [Recovered/Resolved]
  - Hypersensitivity [Recovering/Resolving]
  - Wound [Recovering/Resolving]
  - Urticaria [Not Recovered/Not Resolved]
  - Intentional product misuse [Recovered/Resolved]
  - Intentional dose omission [Recovered/Resolved]
  - Thirst decreased [Recovered/Resolved]
  - Urinary retention [Recovered/Resolved]
  - Dyspnoea [Recovered/Resolved]
  - Skin atrophy [Recovering/Resolving]
  - Arthralgia [Unknown]
  - Myalgia [Unknown]
  - Feeling drunk [Recovered/Resolved]
  - Mouth injury [Recovered/Resolved]
  - Hypertension [Recovered/Resolved]
  - Dry eye [Unknown]
  - Hypertension [Not Recovered/Not Resolved]
